FAERS Safety Report 24064753 (Version 1)
Quarter: 2024Q3

REPORT INFORMATION
  Report Type: Spontaneous
  Country: GB (occurrence: GB)
  Receive Date: 20240709
  Receipt Date: 20240709
  Transmission Date: 20241017
  Serious: Yes (Other)
  Sender: PFIZER
  Company Number: None

PATIENT
  Age: 16 Year
  Sex: Male

DRUGS (2)
  1. DOXYCYCLINE [Suspect]
     Active Substance: DOXYCYCLINE\DOXYCYCLINE HYCLATE
     Indication: Acne
     Dosage: UNK
  2. BUDESONIDE [Concomitant]
     Active Substance: BUDESONIDE
     Dosage: UNK

REACTIONS (5)
  - Chest discomfort [Recovered/Resolved]
  - Gastrooesophageal reflux disease [Not Recovered/Not Resolved]
  - Abdominal pain upper [Recovered/Resolved]
  - Lip swelling [Recovered/Resolved]
  - Dysphagia [Unknown]

NARRATIVE: CASE EVENT DATE: 20240101
